FAERS Safety Report 25452173 (Version 3)
Quarter: 2025Q3

REPORT INFORMATION
  Report Type: Spontaneous
  Country: EU (occurrence: EU)
  Receive Date: 20250618
  Receipt Date: 20250731
  Transmission Date: 20251020
  Serious: Yes (Other)
  Sender: ELI LILLY AND COMPANY
  Company Number: None

PATIENT
  Age: 51 Year
  Sex: Male
  Weight: 92.4 kg

DRUGS (6)
  1. MOUNJARO [Interacting]
     Active Substance: TIRZEPATIDE
     Indication: Weight control
     Dosage: 2.5 MG, WEEKLY (1/W)
     Route: 065
     Dates: start: 20250307, end: 20250401
  2. MOUNJARO [Interacting]
     Active Substance: TIRZEPATIDE
     Indication: Weight control
     Dosage: 5 MG, WEEKLY (1/W)
     Route: 065
     Dates: start: 20250401, end: 20250429
  3. MOUNJARO [Interacting]
     Active Substance: TIRZEPATIDE
     Indication: Weight control
     Dosage: 7.5 MG, WEEKLY (1/W)
     Route: 065
     Dates: start: 20250429
  4. SINTROM [Interacting]
     Active Substance: ACENOCOUMAROL
     Indication: Portal vein thrombosis
     Dosage: 18.5 MG, WEEKLY (1/W)
     Route: 048
     Dates: start: 20240130
  5. SINTROM [Interacting]
     Active Substance: ACENOCOUMAROL
     Indication: Antiphospholipid antibodies positive
     Route: 048
  6. SINTROM [Interacting]
     Active Substance: ACENOCOUMAROL
     Indication: Anticoagulant therapy

REACTIONS (5)
  - Drug interaction [Unknown]
  - Drug interaction [Unknown]
  - International normalised ratio decreased [Unknown]
  - Anticoagulation drug level decreased [Unknown]
  - International normalised ratio abnormal [Unknown]

NARRATIVE: CASE EVENT DATE: 20250301
